FAERS Safety Report 7527704-6 (Version None)
Quarter: 2011Q2

REPORT INFORMATION
  Report Type: 
  Country: None (occurrence: None)
  Receive Date: 20110607
  Receipt Date: 20110601
  Transmission Date: 20111010
  Serious: Yes (Death)
  Sender: FDA-Public Use
  Company Number: PHHY2011US43175

PATIENT
  Sex: Female
  Weight: 48.64 kg

DRUGS (2)
  1. EXJADE [Suspect]
     Indication: MYELOID METAPLASIA
  2. EXJADE [Suspect]
     Indication: MYELOFIBROSIS
     Dosage: 1000 MG, DAILY
     Route: 048
     Dates: start: 20100611, end: 20110323

REACTIONS (3)
  - BONE MARROW FAILURE [None]
  - NEOPLASM MALIGNANT [None]
  - NEOPLASM PROGRESSION [None]
